FAERS Safety Report 18323968 (Version 3)
Quarter: 2020Q4

REPORT INFORMATION
  Report Type: Spontaneous
  Country: US (occurrence: US)
  Receive Date: 20200929
  Receipt Date: 20201007
  Transmission Date: 20210113
  Serious: Yes (Hospitalization)
  Sender: FDA-Public Use
  Company Number: US-ASTRAZENECA-2020SF24673

PATIENT
  Sex: Male
  Weight: 83.9 kg

DRUGS (4)
  1. KOREAN GINSENG [Concomitant]
     Active Substance: PANAX GINSENG WHOLE
     Route: 065
  2. METROPOLOL ER SUCCINATE [Concomitant]
     Indication: BLOOD PRESSURE ABNORMAL
     Dosage: 25 MG IN THE AM AND HALF OF THAT IN THE EVENING
  3. CALQUENCE [Suspect]
     Active Substance: ACALABRUTINIB
     Indication: CHRONIC LYMPHOCYTIC LEUKAEMIA
     Route: 048
     Dates: start: 20200810
  4. DILTIAZEM. [Concomitant]
     Active Substance: DILTIAZEM
     Indication: MITRAL VALVE REPLACEMENT

REACTIONS (9)
  - Feeling of body temperature change [Unknown]
  - Dyspnoea [Unknown]
  - Myalgia [Recovering/Resolving]
  - Contusion [Recovering/Resolving]
  - Pain in extremity [Unknown]
  - Body temperature increased [Recovered/Resolved]
  - Pneumonia [Recovered/Resolved]
  - Blood pressure decreased [Unknown]
  - Upper respiratory tract infection [Unknown]
